FAERS Safety Report 23084227 (Version 18)
Quarter: 2025Q1

REPORT INFORMATION
  Report Type: Spontaneous
  Country: US (occurrence: US)
  Receive Date: 20231019
  Receipt Date: 20250220
  Transmission Date: 20250408
  Serious: Yes (Hospitalization, Other)
  Sender: PFIZER
  Company Number: US-PFIZER INC-2019273500

PATIENT
  Age: 81 Year
  Sex: Female
  Weight: 64.86 kg

DRUGS (3)
  1. PREMARIN [Suspect]
     Active Substance: ESTROGENS, CONJUGATED
     Indication: Neoplasm prophylaxis
     Dosage: 0.625 MG, 1X/DAY (APPLIED EVERY NIGHT TO VAGINAL AREA)
     Route: 067
  2. HALOBETASOL [Concomitant]
     Active Substance: HALOBETASOL
  3. RISPERIDONE [Concomitant]
     Active Substance: RISPERIDONE

REACTIONS (6)
  - Constipation [Unknown]
  - Gastrointestinal disorder [Unknown]
  - Pain [Unknown]
  - Cardiac disorder [Unknown]
  - Cataract [Unknown]
  - Off label use [Unknown]

NARRATIVE: CASE EVENT DATE: 20230101
